FAERS Safety Report 5895744-9 (Version None)
Quarter: 2008Q3

REPORT INFORMATION
  Report Type: 
  Country: None (occurrence: None)
  Receive Date: 20080924
  Receipt Date: 20080702
  Transmission Date: 20090109
  Serious: No
  Sender: FDA-Public Use
  Company Number: US-BAYER-200828158NA

PATIENT
  Age: 61 Year
  Sex: Female

DRUGS (1)
  1. MENOSTAR [Suspect]
     Indication: OSTEOPENIA
     Route: 062

REACTIONS (2)
  - APPLICATION SITE RASH [None]
  - DERMATITIS CONTACT [None]
